FAERS Safety Report 6594549-3 (Version None)
Quarter: 2010Q1

REPORT INFORMATION
  Report Type: 
  Country: None (occurrence: None)
  Receive Date: 20100222
  Receipt Date: 20100215
  Transmission Date: 20100710
  Serious: Yes (Hospitalization)
  Sender: FDA-Public Use
  Company Number: PHHO2009FR05453

PATIENT
  Sex: Female

DRUGS (1)
  1. AFINITOR [Suspect]
     Indication: ENDOMETRIAL CANCER METASTATIC
     Dosage: 10 MG/DAY
     Route: 048
     Dates: start: 20090327, end: 20090423

REACTIONS (14)
  - ANAEMIA [None]
  - ASTHMA [None]
  - DIARRHOEA [None]
  - HAEMOGLOBIN DECREASED [None]
  - HEADACHE [None]
  - HYPERGLYCAEMIA [None]
  - HYPOACUSIS [None]
  - LUNG DISORDER [None]
  - OSTEOPENIA [None]
  - PLATELET COUNT DECREASED [None]
  - STOMATITIS [None]
  - THROMBOCYTOPENIA [None]
  - VERTEBRAL WEDGING [None]
  - VISUAL ACUITY REDUCED [None]
